FAERS Safety Report 6518040-5 (Version None)
Quarter: 2009Q4

REPORT INFORMATION
  Report Type: 
  Country: None (occurrence: None)
  Receive Date: 20091224
  Receipt Date: 20091215
  Transmission Date: 20100525
  Serious: Yes (Other)
  Sender: FDA-Public Use
  Company Number: DE-JNJFOC-20091200106

PATIENT
  Sex: Male
  Weight: 70 kg

DRUGS (4)
  1. HALOPERIDOL DECANOATE [Suspect]
     Indication: SCHIZOAFFECTIVE DISORDER
     Route: 030
     Dates: start: 20060101
  2. ZYPREXA [Suspect]
     Indication: SCHIZOAFFECTIVE DISORDER
     Route: 048
  3. CARBAMAZEPINE [Suspect]
     Indication: SCHIZOAFFECTIVE DISORDER
     Route: 048
  4. JODTHYROX [Suspect]
     Indication: DRUG USE FOR UNKNOWN INDICATION
     Route: 048

REACTIONS (1)
  - UVEITIS [None]
